FAERS Safety Report 21652576 (Version 1)
Quarter: 2022Q4

REPORT INFORMATION
  Report Type: Report from Study
  Country: US (occurrence: US)
  Receive Date: 20221128
  Receipt Date: 20221128
  Transmission Date: 20230112
  Serious: Yes (Hospitalization)
  Sender: FDA-Public Use
  Company Number: US-MYLANLABS-2022M1133517

PATIENT
  Age: 2 Month
  Sex: Male

DRUGS (1)
  1. KETOROLAC [Suspect]
     Active Substance: KETOROLAC TROMETHAMINE
     Indication: Procedural pain
     Dosage: UNK, Q6H (0.5 MG/KG/DOSE)
     Route: 042

REACTIONS (2)
  - Haemorrhage [Unknown]
  - Off label use [Unknown]
